FAERS Safety Report 5500711-0 (Version None)
Quarter: 2007Q4

REPORT INFORMATION
  Report Type: 
  Country: None (occurrence: None)
  Receive Date: 20071018
  Receipt Date: 20070212
  Transmission Date: 20080405
  Serious: Yes (Other)
  Sender: FDA-Public Use
  Company Number: 2007011678

PATIENT
  Sex: Female

DRUGS (1)
  1. NEURONTIN [Suspect]

REACTIONS (5)
  - AGGRESSION [None]
  - COUGH [None]
  - NEGLECT OF PERSONAL APPEARANCE [None]
  - PERSONALITY CHANGE [None]
  - WEIGHT DECREASED [None]
